FAERS Safety Report 13743394 (Version 3)
Quarter: 2017Q3

REPORT INFORMATION
  Report Type: Spontaneous
  Country: GB (occurrence: GB)
  Receive Date: 20170711
  Receipt Date: 20170901
  Transmission Date: 20171127
  Serious: Yes (Life-Threatening, Hospitalization, Other)
  Sender: FDA-Public Use
  Company Number: PHFR2017GB005173

PATIENT
  Age: 41 Year
  Sex: Male

DRUGS (8)
  1. OXYCODONE HYDROCHLORIDE. [Suspect]
     Active Substance: OXYCODONE HYDROCHLORIDE
     Indication: PRODUCT USED FOR UNKNOWN INDICATION
     Route: 065
  2. OXYCONTIN [Suspect]
     Active Substance: OXYCODONE HYDROCHLORIDE
     Indication: PRODUCT USED FOR UNKNOWN INDICATION
     Route: 065
  3. TEMAZEPAM. [Suspect]
     Active Substance: TEMAZEPAM
     Indication: SLEEP DISORDER
     Route: 065
  4. MORPHINE SULFATE. [Suspect]
     Active Substance: MORPHINE SULFATE
     Indication: PRODUCT USED FOR UNKNOWN INDICATION
     Route: 048
  5. FENTANYL. [Suspect]
     Active Substance: FENTANYL
     Indication: PRODUCT USED FOR UNKNOWN INDICATION
     Route: 065
  6. DIAZEPAM. [Suspect]
     Active Substance: DIAZEPAM
     Indication: SLEEP DISORDER
     Route: 065
  7. TRAMADOL HYDROCHLORIDE. [Suspect]
     Active Substance: TRAMADOL HYDROCHLORIDE
     Indication: PAIN IN EXTREMITY
     Route: 065
  8. ALCOHOL. [Suspect]
     Active Substance: ALCOHOL
     Indication: PAIN
     Route: 065

REACTIONS (15)
  - Hallucination [Unknown]
  - Drug dependence [Recovering/Resolving]
  - Psychotic disorder [Unknown]
  - Hyperhidrosis [Unknown]
  - Insomnia [Unknown]
  - Dysarthria [Unknown]
  - Irritability [Unknown]
  - Coordination abnormal [Unknown]
  - Headache [Unknown]
  - Erectile dysfunction [Unknown]
  - Drug abuse [Unknown]
  - Nightmare [Unknown]
  - Scratch [Unknown]
  - Anxiety [Unknown]
  - Depression [Unknown]
